FAERS Safety Report 9969536 (Version 1)
Quarter: 2014Q1

REPORT INFORMATION
  Report Type: Spontaneous
  Country: DE (occurrence: DE)
  Receive Date: 20140306
  Receipt Date: 20140306
  Transmission Date: 20141002
  Serious: Yes (Congenital Anomaly, Other)
  Sender: FDA-Public Use
  Company Number: DE-DRREDDYS-GER/GER/14/0038628

PATIENT
  Age: 1 Day
  Sex: Male
  Weight: 3.64 kg

DRUGS (4)
  1. VENLAFAXINE [Suspect]
     Indication: PRODUCT USED FOR UNKNOWN INDICATION
     Route: 064
     Dates: start: 20121010
  2. VENLAFAXINE [Suspect]
     Route: 064
     Dates: end: 20130702
  3. FOLIO FORTE [Concomitant]
     Indication: PRODUCT USED FOR UNKNOWN INDICATION
     Route: 064
  4. FOLIO FORTE [Concomitant]
     Route: 064

REACTIONS (6)
  - Neonatal respiratory distress syndrome [Recovered/Resolved]
  - Patent ductus arteriosus [Recovered/Resolved]
  - Atrial septal defect [Not Recovered/Not Resolved]
  - Feeding disorder neonatal [Recovered/Resolved]
  - Agitation neonatal [Recovered/Resolved]
  - Foetal exposure during pregnancy [Unknown]
